FAERS Safety Report 7795812-0 (Version None)
Quarter: 2011Q4

REPORT INFORMATION
  Report Type: 
  Country: None (occurrence: None)
  Receive Date: 20111004
  Receipt Date: 20110926
  Transmission Date: 20120403
  Serious: Yes (Hospitalization, Other)
  Sender: FDA-Public Use
  Company Number: BR-ABBOTT-10P-020-0673120-00

PATIENT
  Sex: Female
  Weight: 68 kg

DRUGS (7)
  1. DICLOFENAC SODIUM [Concomitant]
     Indication: PAIN
     Dosage: 3 EVERY 24 HOURS AS NECESSARY
     Route: 048
     Dates: start: 20090101
  2. HUMIRA [Suspect]
     Indication: RHEUMATOID ARTHRITIS
     Route: 058
  3. PREDNISONE [Concomitant]
     Indication: STEROID THERAPY
     Route: 048
     Dates: start: 20090101
  4. CALCIUM BICARBONATE [Concomitant]
     Indication: BONE DISORDER
     Route: 048
  5. FOLIC ACID [Concomitant]
     Indication: VITAMIN SUPPLEMENTATION
     Route: 048
  6. SIMVASTATIN [Concomitant]
     Indication: BLOOD CHOLESTEROL INCREASED
     Route: 048
  7. METHOTREXATE [Concomitant]
     Indication: RHEUMATOID ARTHRITIS
     Route: 048

REACTIONS (13)
  - EATING DISORDER [None]
  - HEADACHE [None]
  - DEPRESSION [None]
  - SYNCOPE [None]
  - TOOTH FRACTURE [None]
  - OEDEMA PERIPHERAL [None]
  - WEIGHT DECREASED [None]
  - HYPERTENSION [None]
  - VOMITING [None]
  - DECREASED APPETITE [None]
  - OPEN WOUND [None]
  - GASTRIC DISORDER [None]
  - PAIN IN EXTREMITY [None]
